FAERS Safety Report 22612519 (Version 1)
Quarter: 2023Q2

REPORT INFORMATION
  Report Type: Spontaneous
  Country: JP (occurrence: JP)
  Receive Date: 20230617
  Receipt Date: 20230617
  Transmission Date: 20230722
  Serious: Yes (Other)
  Sender: FDA-Public Use
  Company Number: JP-Nexus Pharma-000207

PATIENT
  Age: 36 Year
  Sex: Male

DRUGS (20)
  1. COLISTIMETHATE SODIUM [Suspect]
     Active Substance: COLISTIMETHATE SODIUM
     Indication: Epididymitis
     Dosage: 200 MG/DAY ADMINISTERED PARENTERALLY,?FROM DAY 91 TO 117 POST-CBT
  2. DEFEROXAMINE [Suspect]
     Active Substance: DEFEROXAMINE MESYLATE
     Indication: Hyperferritinaemia
     Dosage: 1000 MG WAS DILUTED IN 100 ML NORMAL SALINE AND INFUSED FOR 2 HOURS.?DAY 133 TO 141 POST-CBT
     Route: 042
  3. METHYLPREDNISOLONE [Concomitant]
     Active Substance: METHYLPREDNISOLONE
     Indication: Acute graft versus host disease in intestine
     Dosage: PARENTERAL
  4. PREDNISOLONE [Concomitant]
     Active Substance: PREDNISOLONE
  5. PIPERACILLIN SODIUM\TAZOBACTAM SODIUM [Concomitant]
     Active Substance: PIPERACILLIN SODIUM\TAZOBACTAM SODIUM
  6. ACYCLOVIR [Concomitant]
     Active Substance: ACYCLOVIR
  7. AMPHOTERICIN B [Concomitant]
     Active Substance: AMPHOTERICIN B
  8. FOSCARNET [Concomitant]
     Active Substance: FOSCARNET
  9. LEVETIRACETAM [Concomitant]
     Active Substance: LEVETIRACETAM
  10. MEROPENEM [Concomitant]
     Active Substance: MEROPENEM
     Dosage: DAY 122 TO 126 POST-CBT
  11. FLUCONAZOLE [Concomitant]
     Active Substance: FLUCONAZOLE
  12. SULFAMETHOXAZOLE\TRIMETHOPRIM [Concomitant]
     Active Substance: SULFAMETHOXAZOLE\TRIMETHOPRIM
     Dosage: 400 MG/80 MG DAILY UNTIL DAY 106 POST-CBT AND THEREAFTER DOSE REDUCED TO 400 MG/80 MG TWICE WEEKLY.
  13. LEVETIRACETAM [Concomitant]
     Active Substance: LEVETIRACETAM
  14. PIPERACILLIN SODIUM\TAZOBACTAM SODIUM [Concomitant]
     Active Substance: PIPERACILLIN SODIUM\TAZOBACTAM SODIUM
  15. PREDNISOLONE [Concomitant]
     Active Substance: PREDNISOLONE
  16. PREDNISOLONE [Concomitant]
     Active Substance: PREDNISOLONE
  17. PREDNISOLONE [Concomitant]
     Active Substance: PREDNISOLONE
  18. PREDNISOLONE [Concomitant]
     Active Substance: PREDNISOLONE
  19. PREDNISOLONE [Concomitant]
     Active Substance: PREDNISOLONE
  20. COLISTIMETHATE SODIUM [Suspect]
     Active Substance: COLISTIMETHATE SODIUM
     Indication: Epididymitis
     Dosage: 200 MG/DAY ADMINISTERED PARENTERALLY, FROM DAY 127 TO 141 POST-CBT

REACTIONS (1)
  - Acute kidney injury [Recovered/Resolved]
